FAERS Safety Report 7726106-7 (Version None)
Quarter: 2011Q3

REPORT INFORMATION
  Report Type: 
  Country: None (occurrence: None)
  Receive Date: 20110902
  Receipt Date: 20110823
  Transmission Date: 20111222
  Serious: Yes (Hospitalization, Other)
  Sender: FDA-Public Use
  Company Number: CA-NAPPMUNDI-DEU-2011-0007716

PATIENT
  Age: 71 Year
  Sex: Female

DRUGS (3)
  1. GABAPENTIN [Suspect]
     Indication: PAIN
     Dosage: 1800 MG, DAILY
     Route: 048
  2. LIDOCAINE [Suspect]
     Indication: PAIN
     Dosage: UNK UNK, DAILY
     Route: 061
  3. HYDROMORPHONE HCL [Suspect]
     Indication: PAIN
     Dosage: 12 MG, DAILY
     Route: 048

REACTIONS (1)
  - ABDOMINAL HERNIA [None]
